FAERS Safety Report 17053097 (Version 1)
Quarter: 2019Q4

REPORT INFORMATION
  Report Type: Spontaneous
  Country: US (occurrence: US)
  Receive Date: 20191120
  Receipt Date: 20191120
  Transmission Date: 20200122
  Serious: No
  Sender: FDA-Public Use
  Company Number: US-PFIZER INC-2019494009

PATIENT

DRUGS (1)
  1. LYRICA [Suspect]
     Active Substance: PREGABALIN
     Indication: OPTIC ISCHAEMIC NEUROPATHY
     Dosage: UNK

REACTIONS (4)
  - Eye swelling [Unknown]
  - Product use in unapproved indication [Unknown]
  - Off label use [Unknown]
  - Visual impairment [Unknown]
